FAERS Safety Report 4731110-7 (Version None)
Quarter: 2005Q3

REPORT INFORMATION
  Report Type: 
  Country: None (occurrence: None)
  Receive Date: 20050721
  Receipt Date: 20050615
  Transmission Date: 20060218
  Serious: No
  Sender: FDA-Public Use
  Company Number: 2005SP001425

PATIENT
  Age: 73 Year
  Sex: Female

DRUGS (2)
  1. LUNESTA [Suspect]
     Dosage: 2 MG;HS
     Dates: start: 20050601
  2. ASPIRIN [Concomitant]

REACTIONS (2)
  - URINARY INCONTINENCE [None]
  - VAGINAL BURNING SENSATION [None]
